FAERS Safety Report 7424296-7 (Version None)
Quarter: 2011Q2

REPORT INFORMATION
  Report Type: 
  Country: None (occurrence: None)
  Receive Date: 20110411
  Receipt Date: 20110401
  Transmission Date: 20111010
  Serious: Yes (Other)
  Sender: FDA-Public Use
  Company Number: ACO_22912_2011

PATIENT
  Age: 41 Year
  Sex: Male

DRUGS (5)
  1. AMPYRA [Suspect]
     Indication: MULTIPLE SCLEROSIS
     Dates: start: 20100501, end: 20100701
  2. AVONEX [Concomitant]
  3. MULTIVITAMIN [Concomitant]
  4. VITAMIN B NOS (VITAMIN B NOS) [Concomitant]
  5. ASPIRIN [Concomitant]

REACTIONS (5)
  - LACERATION [None]
  - DIZZINESS [None]
  - DEHYDRATION [None]
  - SYNCOPE [None]
  - LOSS OF CONSCIOUSNESS [None]
